FAERS Safety Report 15596278 (Version 1)
Quarter: 2018Q4

REPORT INFORMATION
  Report Type: Spontaneous
  Country: GB (occurrence: GB)
  Receive Date: 20181107
  Receipt Date: 20181107
  Transmission Date: 20190205
  Serious: Yes (Other)
  Sender: FDA-Public Use
  Company Number: PHHY2018GB144822

PATIENT
  Age: 55 Year
  Sex: Female

DRUGS (2)
  1. DEXAFREE [Suspect]
     Active Substance: DEXAMETHASONE SODIUM PHOSPHATE
     Indication: PRODUCT USED FOR UNKNOWN INDICATION
     Dosage: UNK, BID
     Route: 065
  2. MOXIFLOXACIN 0.5% [Suspect]
     Active Substance: MOXIFLOXACIN
     Indication: PRODUCT USED FOR UNKNOWN INDICATION
     Dosage: UNK UNK, QID
     Route: 047

REACTIONS (4)
  - Vomiting [Unknown]
  - Eye pain [Unknown]
  - Angle closure glaucoma [Unknown]
  - Headache [Unknown]
